FAERS Safety Report 14496222 (Version 3)
Quarter: 2018Q1

REPORT INFORMATION
  Report Type: Spontaneous
  Country: US (occurrence: US)
  Receive Date: 20180207
  Receipt Date: 20180301
  Transmission Date: 20180509
  Serious: Yes (Life-Threatening, Hospitalization, Disabling, Other)
  Sender: FDA-Public Use
  Company Number: US-B.I. PHARMACEUTICALS,INC./RIDGEFIELD-2018-BI-006477

PATIENT
  Age: 62 Year
  Sex: Female
  Weight: 72.57 kg

DRUGS (5)
  1. SYNJARDY XR [Suspect]
     Active Substance: EMPAGLIFLOZIN\METFORMIN HYDROCHLORIDE
     Indication: TYPE 2 DIABETES MELLITUS
     Dosage: STRENGTH: 12.5MG/1000MG
     Route: 048
     Dates: start: 201709
  2. AMLODIPINE [Concomitant]
     Active Substance: AMLODIPINE BESYLATE
     Indication: HYPERTENSION
     Route: 065
  3. SYNJARDY XR [Suspect]
     Active Substance: EMPAGLIFLOZIN\METFORMIN HYDROCHLORIDE
     Dosage: STRENGTH: 25 MG/1000 MG
     Route: 048
     Dates: start: 20171220, end: 20180127
  4. VALSARTAN HCT [Concomitant]
     Active Substance: HYDROCHLOROTHIAZIDE\VALSARTAN
     Indication: TYPE 2 DIABETES MELLITUS
     Dosage: 160MG/12.5MG
     Route: 065
  5. BYDUREON [Concomitant]
     Active Substance: EXENATIDE
     Indication: TYPE 2 DIABETES MELLITUS
     Route: 065

REACTIONS (7)
  - Diabetic ketoacidosis [Unknown]
  - Pain in extremity [Unknown]
  - Amputation [Recovered/Resolved]
  - Foot operation [Unknown]
  - Tachycardia [Unknown]
  - Toe amputation [Recovered/Resolved with Sequelae]
  - Skin ulcer [Unknown]

NARRATIVE: CASE EVENT DATE: 201801
